FAERS Safety Report 22115053 (Version 1)
Quarter: 2023Q1

REPORT INFORMATION
  Report Type: Spontaneous
  Country: KR (occurrence: KR)
  Receive Date: 20230320
  Receipt Date: 20230320
  Transmission Date: 20230418
  Serious: Yes (Other)
  Sender: FDA-Public Use
  Company Number: KR-MYLANLABS-2023M1027521

PATIENT

DRUGS (1)
  1. CELEBREX [Suspect]
     Active Substance: CELECOXIB
     Indication: Product used for unknown indication
     Dosage: 200 MILLIGRAM
     Route: 065

REACTIONS (5)
  - Pulmonary embolism [Unknown]
  - Cardiac failure [Unknown]
  - Cardiomegaly [Unknown]
  - Atrial tachycardia [Unknown]
  - Nephropathy [Unknown]
